FAERS Safety Report 8574675-X (Version None)
Quarter: 2012Q3

REPORT INFORMATION
  Report Type: 
  Country: None (occurrence: None)
  Receive Date: 20120807
  Receipt Date: 20120724
  Transmission Date: 20120928
  Serious: Yes (Life-Threatening, Hospitalization, Other)
  Sender: FDA-Public Use
  Company Number: JP-AMGEN-JPNSP2012039352

PATIENT
  Age: 62 Year
  Sex: Female
  Weight: 46.6 kg

DRUGS (5)
  1. ENBREL [Suspect]
     Indication: RHEUMATOID ARTHRITIS
     Dosage: 25 MG, 2X/WEEK
     Route: 058
     Dates: start: 20091028, end: 20101219
  2. ENBREL [Suspect]
     Dosage: 50 MG, WEEKLY
     Dates: start: 20101220, end: 20120601
  3. FOLIC ACID [Concomitant]
     Indication: PROPHYLAXIS
     Dosage: 5 MG, WEEKLY
     Route: 048
     Dates: start: 20090925, end: 20120601
  4. ENBREL [Suspect]
     Dosage: 50 MG, WEEKLY
     Route: 058
     Dates: start: 20091028, end: 20120401
  5. RHEUMATREX [Concomitant]
     Indication: RHEUMATOID ARTHRITIS
     Dosage: 6 MG, WEEKLY
     Route: 048
     Dates: start: 20090925, end: 20120601

REACTIONS (1)
  - COLON CANCER [None]
